FAERS Safety Report 6470388-9 (Version None)
Quarter: 2009Q4

REPORT INFORMATION
  Report Type: 
  Country: None (occurrence: None)
  Receive Date: 20091203
  Receipt Date: 20091125
  Transmission Date: 20100525
  Serious: Yes (Hospitalization)
  Sender: FDA-Public Use
  Company Number: FR-PFIZER INC-2009201032

PATIENT
  Age: 60 Year
  Sex: Male

DRUGS (10)
  1. SUNITINIB MALATE [Suspect]
     Indication: PANCREATIC CARCINOMA
     Dosage: 37.5 MG, 1X/DAY
     Route: 048
     Dates: start: 20090106, end: 20090407
  2. CREON [Concomitant]
     Indication: PANCREATIC INSUFFICIENCY
     Dosage: UNK
     Dates: start: 20060206
  3. OFLOCET [Concomitant]
     Indication: CHOLANGITIS
     Dosage: UNK
     Dates: start: 20080911
  4. OFLOCET [Concomitant]
     Indication: PYREXIA
     Dosage: UNK
     Dates: start: 20090414, end: 20090423
  5. IMODIUM [Concomitant]
     Indication: DIARRHOEA
     Dosage: UNK
     Dates: start: 20090115, end: 20090601
  6. NOVONORM [Concomitant]
     Indication: DIABETES MELLITUS
     Dosage: UNK
     Dates: start: 20081231, end: 20090217
  7. NOVONORM [Concomitant]
     Dosage: UNK
     Dates: start: 20090330, end: 20090414
  8. NOVONORM [Concomitant]
     Dosage: UNK
     Dates: start: 20090416
  9. SANDOSTATIN [Concomitant]
     Indication: FLUSHING
     Dosage: UNK
     Dates: start: 20090204
  10. MOTILIUM [Concomitant]
     Indication: VOMITING
     Dosage: UNK
     Dates: start: 20090106, end: 20090101

REACTIONS (1)
  - LUNG DISORDER [None]
